FAERS Safety Report 11392983 (Version 1)
Quarter: 2015Q3

REPORT INFORMATION
  Report Type: Spontaneous
  Country: US (occurrence: US)
  Receive Date: 20150818
  Receipt Date: 20150818
  Transmission Date: 20151125
  Serious: Yes (Other)
  Sender: FDA-Public Use
  Company Number: US-B.I. PHARMACEUTICALS,INC./RIDGEFIELD-2015-BI-44868GD

PATIENT
  Age: 62 Year
  Sex: Male

DRUGS (1)
  1. SIFROL [Suspect]
     Active Substance: PRAMIPEXOLE
     Indication: RESTLESS LEGS SYNDROME
     Dosage: 2 MG
     Route: 065

REACTIONS (3)
  - Drug effect incomplete [Unknown]
  - Impulse-control disorder [Unknown]
  - Pathological gambling [Recovered/Resolved]
